FAERS Safety Report 6741593-9 (Version None)
Quarter: 2010Q2

REPORT INFORMATION
  Report Type: 
  Country: None (occurrence: None)
  Receive Date: 20100526
  Receipt Date: 20100510
  Transmission Date: 20101027
  Serious: Yes (Other)
  Sender: FDA-Public Use
  Company Number: FR-ABBOTT-10P-056-0637705-00

PATIENT
  Age: 40 Year
  Sex: Female

DRUGS (5)
  1. NAXY TABLETS [Suspect]
     Indication: BRONCHITIS
     Route: 048
     Dates: start: 20100403, end: 20100406
  2. KESTIN [Interacting]
     Indication: HYPERSENSITIVITY
     Route: 048
     Dates: end: 20100406
  3. KESTIN [Interacting]
     Indication: ASTHMA
  4. CORTISONE [Concomitant]
     Indication: HYPERSENSITIVITY
  5. PNEUMOREL [Concomitant]
     Indication: BRONCHITIS

REACTIONS (4)
  - DRUG INTERACTION [None]
  - OEDEMA PERIPHERAL [None]
  - PAIN IN EXTREMITY [None]
  - RHABDOMYOLYSIS [None]
